FAERS Safety Report 13706906 (Version 1)
Quarter: 2017Q2

REPORT INFORMATION
  Report Type: Spontaneous
  Country: US (occurrence: US)
  Receive Date: 20170630
  Receipt Date: 20170630
  Transmission Date: 20170830
  Serious: No
  Sender: FDA-Public Use
  Company Number: US-JNJFOC-20170614498

PATIENT
  Sex: Female

DRUGS (3)
  1. RISPERDAL CONSTA [Suspect]
     Active Substance: RISPERIDONE
     Indication: SCHIZOAFFECTIVE DISORDER BIPOLAR TYPE
     Route: 030
  2. RISPERDAL CONSTA [Suspect]
     Active Substance: RISPERIDONE
     Indication: SCHIZOAFFECTIVE DISORDER BIPOLAR TYPE
     Route: 030
  3. INVEGA SUSTENNA [Suspect]
     Active Substance: PALIPERIDONE PALMITATE
     Indication: SCHIZOAFFECTIVE DISORDER BIPOLAR TYPE
     Route: 030
     Dates: start: 2017

REACTIONS (9)
  - Inappropriate schedule of drug administration [Unknown]
  - Dizziness [Unknown]
  - Off label use [Unknown]
  - Delusion [Unknown]
  - Treatment noncompliance [Unknown]
  - Gait disturbance [Unknown]
  - Visual impairment [Unknown]
  - Somnolence [Unknown]
  - Exostosis [Unknown]

NARRATIVE: CASE EVENT DATE: 2017
